FAERS Safety Report 9852996 (Version 1)
Quarter: 2014Q1

REPORT INFORMATION
  Report Type: Spontaneous
  Country: AU (occurrence: None)
  Receive Date: 20140127
  Receipt Date: 20140127
  Transmission Date: 20141002
  Serious: No
  Sender: FDA-Public Use
  Company Number: 2013000430

PATIENT
  Sex: Female

DRUGS (8)
  1. ACEON (PERINDOPRIL ERBUMINE) TABLET [Suspect]
     Indication: PRODUCT USED FOR UNKNOWN INDICATION
  2. BETOPTIC [Suspect]
     Indication: PRODUCT USED FOR UNKNOWN INDICATION
  3. DIABEX [Suspect]
     Indication: PRODUCT USED FOR UNKNOWN INDICATION
  4. DIAMICRON [Suspect]
     Indication: PRODUCT USED FOR UNKNOWN INDICATION
  5. BRIMONIDINE TARTRATE (BRIMONIDINE TARTRATE) [Suspect]
     Indication: PRODUCT USED FOR UNKNOWN INDICATION
  6. DIGOXIN [Suspect]
     Indication: PRODUCT USED FOR UNKNOWN INDICATION
  7. GLYCERYL TRINITRATE [Suspect]
     Indication: PRODUCT USED FOR UNKNOWN INDICATION
  8. METROPROLOL [Suspect]

REACTIONS (6)
  - Confusional state [None]
  - Drug level increased [None]
  - Oliguria [None]
  - Somnolence [None]
  - Vomiting [None]
  - Renal failure acute [None]
